FAERS Safety Report 23150303 (Version 1)
Quarter: 2023Q4

REPORT INFORMATION
  Report Type: Spontaneous
  Country: US (occurrence: US)
  Receive Date: 20231106
  Receipt Date: 20231106
  Transmission Date: 20240110
  Serious: No
  Sender: FDA-Public Use
  Company Number: US-SANDOZ-SDZ2023US050725

PATIENT
  Sex: Male

DRUGS (1)
  1. ALBUTEROL SULFATE [Suspect]
     Active Substance: ALBUTEROL SULFATE
     Indication: Nasal congestion
     Dosage: 90MCG/DOS 200DO
     Route: 055

REACTIONS (5)
  - Product dose omission issue [Unknown]
  - Product dispensing issue [Unknown]
  - Device issue [Unknown]
  - Off label use [Unknown]
  - Drug ineffective [Unknown]
